FAERS Safety Report 4801896-1 (Version None)
Quarter: 2005Q4

REPORT INFORMATION
  Report Type: 
  Country: None (occurrence: None)
  Receive Date: 20051018
  Receipt Date: 20050905
  Transmission Date: 20060501
  Serious: Yes (Hospitalization, Other)
  Sender: FDA-Public Use
  Company Number: PHNU2005DE03059

PATIENT
  Age: 68 Year
  Sex: Female

DRUGS (6)
  1. CARBAMAZEPINE [Suspect]
     Indication: EPILEPSY
     Dosage: 900 MG/D
     Route: 048
     Dates: start: 19700101, end: 20050901
  2. FOSAMAX [Concomitant]
     Dosage: 70 MG, QW
     Route: 048
     Dates: start: 20020101
  3. AMLODIPINE [Concomitant]
     Indication: HYPERTENSION
     Dosage: 10 MG/DAY
     Route: 048
     Dates: start: 20050801
  4. METOPROLOL [Concomitant]
     Indication: HYPERTENSION
     Dosage: 50 MG/DAY
     Route: 048
     Dates: start: 20050801
  5. CLOPIDOGREL [Concomitant]
     Dosage: 75 MG/DAY
     Route: 048
     Dates: start: 20050801
  6. RAMIPRIL [Concomitant]
     Dosage: 5 MG/DAY
     Route: 048
     Dates: start: 20050801, end: 20050801

REACTIONS (10)
  - BREAST CANCER [None]
  - CEREBRAL HAEMORRHAGE [None]
  - HYPERALDOSTERONISM [None]
  - HYPERTENSION [None]
  - HYPONATRAEMIA [None]
  - ILLUSION [None]
  - IMPULSE-CONTROL DISORDER [None]
  - PERSONALITY CHANGE [None]
  - RETINOPATHY HYPERTENSIVE [None]
  - SOMNOLENCE [None]
